FAERS Safety Report 25708161 (Version 2)
Quarter: 2025Q3

REPORT INFORMATION
  Report Type: Spontaneous
  Country: US (occurrence: US)
  Receive Date: 20250820
  Receipt Date: 20250915
  Transmission Date: 20251020
  Serious: No
  Sender: BRISTOL-MYERS SQUIBB COMPANY
  Company Number: US-BRISTOL-MYERS SQUIBB COMPANY-2025-115419

PATIENT
  Age: 84 Year
  Sex: Male

DRUGS (2)
  1. REVLIMID [Suspect]
     Active Substance: LENALIDOMIDE
     Indication: Plasma cell myeloma
     Dosage: 1 PO QD
     Dates: start: 20250603
  2. REVLIMID [Suspect]
     Active Substance: LENALIDOMIDE
     Dosage: 1 PO QD
     Dates: start: 20250702

REACTIONS (2)
  - Rash [Unknown]
  - Abdominal discomfort [Unknown]
